FAERS Safety Report 6297469-7 (Version None)
Quarter: 2009Q3

REPORT INFORMATION
  Report Type: 
  Country: None (occurrence: None)
  Receive Date: 20090804
  Receipt Date: 20090804
  Transmission Date: 20100115
  Serious: Yes (Other)
  Sender: FDA-Public Use
  Company Number: None

PATIENT
  Age: 63 Year
  Sex: Male
  Weight: 79.5 kg

DRUGS (1)
  1. SAVELLA [Suspect]
     Indication: FIBROMYALGIA
     Dosage: TWO WEEK TITRATION PACK TWICE/DAY MOUTH TWO WEEKS STARTING JULY25TH/09
     Route: 048
     Dates: start: 20090725

REACTIONS (7)
  - HEPATIC CONGESTION [None]
  - HEPATIC FAILURE [None]
  - INSOMNIA [None]
  - PAIN [None]
  - SEROTONIN SYNDROME [None]
  - TONGUE COATED [None]
  - YELLOW SKIN [None]
